FAERS Safety Report 15376669 (Version 2)
Quarter: 2018Q3

REPORT INFORMATION
  Report Type: Report from Study
  Country: US (occurrence: US)
  Receive Date: 20180912
  Receipt Date: 20180921
  Transmission Date: 20181010
  Serious: Yes (Life-Threatening, Other)
  Sender: FDA-Public Use
  Company Number: US-BEH-2018094671

PATIENT
  Age: 28 Year
  Sex: Female

DRUGS (12)
  1. ALBUMINAR?5 [Suspect]
     Active Substance: ALBUMIN HUMAN
     Dosage: 131.5 ML, UNK
     Route: 042
     Dates: start: 20180517
  2. ALBUMINAR?5 [Suspect]
     Active Substance: ALBUMIN HUMAN
     Dosage: UNK
     Route: 042
  3. CYTOGAM [Suspect]
     Active Substance: HUMAN CYTOMEGALOVIRUS IMMUNE GLOBULIN
     Dosage: 131.5 ML, UNK
     Route: 042
     Dates: start: 20180517
  4. BLINDED ALBUMIN 5% [Suspect]
     Active Substance: ALBUMIN HUMAN
     Dosage: UNK
     Route: 042
  5. ALBUMINAR?5 [Suspect]
     Active Substance: ALBUMIN HUMAN
     Dosage: UNK
     Route: 042
  6. CYTOGAM [Suspect]
     Active Substance: HUMAN CYTOMEGALOVIRUS IMMUNE GLOBULIN
     Dosage: UNK
     Route: 042
  7. ALBUMINAR?5 [Suspect]
     Active Substance: ALBUMIN HUMAN
     Indication: CYTOMEGALOVIRUS INFECTION
     Dosage: 131.5 ML, UNK
     Route: 042
     Dates: start: 20180419, end: 20180517
  8. CYTOGAM [Suspect]
     Active Substance: HUMAN CYTOMEGALOVIRUS IMMUNE GLOBULIN
     Indication: CYTOMEGALOVIRUS INFECTION
     Dosage: 131.5 ML, UNK
     Route: 042
     Dates: start: 20180419, end: 20180517
  9. BLINDED ALBUMIN 5% [Suspect]
     Active Substance: ALBUMIN HUMAN
     Dosage: 131.5 ML, UNK
     Route: 042
     Dates: start: 20180517
  10. BLINDED ALBUMIN 5% [Suspect]
     Active Substance: ALBUMIN HUMAN
     Indication: CYTOMEGALOVIRUS INFECTION
     Dosage: 131.5 ML, UNK
     Route: 042
     Dates: start: 20180419, end: 20180517
  11. CYTOGAM [Suspect]
     Active Substance: HUMAN CYTOMEGALOVIRUS IMMUNE GLOBULIN
     Dosage: UNK
     Route: 042
  12. BLINDED ALBUMIN 5% [Suspect]
     Active Substance: ALBUMIN HUMAN
     Dosage: UNK
     Route: 042

REACTIONS (3)
  - Placenta accreta [Unknown]
  - Placenta praevia [Unknown]
  - Premature delivery [Recovered/Resolved]

NARRATIVE: CASE EVENT DATE: 20180824
